FAERS Safety Report 26134688 (Version 1)
Quarter: 2025Q4

REPORT INFORMATION
  Report Type: Spontaneous
  Country: US (occurrence: US)
  Receive Date: 20251209
  Receipt Date: 20251209
  Transmission Date: 20260119
  Serious: Yes (Hospitalization)
  Sender: MYLAN
  Company Number: US-MYLANLABS-2025M1103258

PATIENT
  Age: 57 Year
  Sex: Male

DRUGS (8)
  1. POSACONAZOLE [Suspect]
     Active Substance: POSACONAZOLE
     Indication: Histoplasmosis
     Dosage: 300 MILLIGRAM, QD
  2. POSACONAZOLE [Suspect]
     Active Substance: POSACONAZOLE
     Dosage: 300 MILLIGRAM, QD
     Route: 065
  3. POSACONAZOLE [Suspect]
     Active Substance: POSACONAZOLE
     Dosage: 300 MILLIGRAM, QD
     Route: 065
  4. POSACONAZOLE [Suspect]
     Active Substance: POSACONAZOLE
     Dosage: 300 MILLIGRAM, QD
  5. ITRACONAZOLE [Suspect]
     Active Substance: ITRACONAZOLE
     Indication: Histoplasmosis
     Dosage: 500 MILLIGRAM, BID
  6. ITRACONAZOLE [Suspect]
     Active Substance: ITRACONAZOLE
     Dosage: 500 MILLIGRAM, BID
     Route: 048
  7. ITRACONAZOLE [Suspect]
     Active Substance: ITRACONAZOLE
     Dosage: 500 MILLIGRAM, BID
     Route: 048
  8. ITRACONAZOLE [Suspect]
     Active Substance: ITRACONAZOLE
     Dosage: 500 MILLIGRAM, BID

REACTIONS (4)
  - Apparent mineralocorticoid excess [Recovered/Resolved]
  - Gastrointestinal disorder [Unknown]
  - Hypokalaemia [Recovered/Resolved]
  - Hypertension [Recovered/Resolved]
